FAERS Safety Report 23879581 (Version 1)
Quarter: 2024Q2

REPORT INFORMATION
  Report Type: Spontaneous
  Country: US (occurrence: None)
  Receive Date: 20240521
  Receipt Date: 20240521
  Transmission Date: 20240716
  Serious: Yes (Other)
  Sender: FDA-Public Use
  Company Number: 2024A117520

PATIENT
  Weight: 73.5 kg

DRUGS (3)
  1. LYNPARZA [Suspect]
     Active Substance: OLAPARIB
     Route: 048
  2. TALZENNA [Suspect]
     Active Substance: TALAZOPARIB TOSYLATE
     Indication: Breast cancer
     Route: 048
  3. XANAX [Concomitant]
     Active Substance: ALPRAZOLAM
     Dosage: EVERY 4 HOURS 0.25MG AS REQUIRED
     Route: 048

REACTIONS (7)
  - Metastases to central nervous system [Unknown]
  - Metastases to meninges [Recovering/Resolving]
  - Aphasia [Recovering/Resolving]
  - Nausea [Not Recovered/Not Resolved]
  - Vomiting [Not Recovered/Not Resolved]
  - Brain fog [Recovering/Resolving]
  - Fatigue [Not Recovered/Not Resolved]
